FAERS Safety Report 7600538-X (Version None)
Quarter: 2011Q2

REPORT INFORMATION
  Report Type: 
  Country: None (occurrence: None)
  Receive Date: 20110629
  Receipt Date: 20110615
  Transmission Date: 20111010
  Serious: Yes (Life-Threatening, Hospitalization, Other)
  Sender: FDA-Public Use
  Company Number: 2011MA007884

PATIENT
  Age: 47 Year
  Sex: Male

DRUGS (7)
  1. GABAPENTIN [Concomitant]
  2. MST CONTINUS ^ASTA MEDICA^ [Concomitant]
  3. SUNITINIB MALATE [Suspect]
     Indication: RENAL CELL CARCINOMA
     Dates: start: 20060113, end: 20060125
  4. PROZAC [Concomitant]
  5. ZOPICLONE [Concomitant]
  6. ORAMORPH SR [Concomitant]
  7. PROPRANOLOL HCL [Suspect]
     Indication: RENAL CELL CARCINOMA
     Dosage: 10 MG, BID, PO
     Route: 048
     Dates: start: 20060113, end: 20060125

REACTIONS (16)
  - PERICARDIAL EFFUSION [None]
  - VENTRICULAR TACHYCARDIA [None]
  - ABDOMINAL PAIN [None]
  - VOMITING [None]
  - BLOOD PRESSURE FLUCTUATION [None]
  - HYPOCALCAEMIA [None]
  - DIARRHOEA [None]
  - SHOCK [None]
  - PLATELET COUNT DECREASED [None]
  - TORSADE DE POINTES [None]
  - INTRACRANIAL PRESSURE INCREASED [None]
  - NAUSEA [None]
  - ISCHAEMIC HEPATITIS [None]
  - CHOLELITHIASIS [None]
  - CARDIAC ARREST [None]
  - PARTIAL SEIZURES [None]
